FAERS Safety Report 5146553-X (Version None)
Quarter: 2006Q4

REPORT INFORMATION
  Report Type: 
  Country: None (occurrence: None)
  Receive Date: 20061107
  Receipt Date: 20061107
  Transmission Date: 20070319
  Serious: Yes (Hospitalization, Other)
  Sender: FDA-Public Use
  Company Number: None

PATIENT

DRUGS (2)
  1. RITUXIMAB [Suspect]
  2. CYCLOPHOSPHAMIDE [Suspect]

REACTIONS (6)
  - HYPOAESTHESIA [None]
  - NODULE [None]
  - OEDEMA PERIPHERAL [None]
  - RASH MACULO-PAPULAR [None]
  - SKIN DISCOLOURATION [None]
  - SKIN HAEMORRHAGE [None]
